FAERS Safety Report 6815252-8 (Version None)
Quarter: 2010Q3

REPORT INFORMATION
  Report Type: 
  Country: None (occurrence: None)
  Receive Date: 20100701
  Receipt Date: 20100701
  Transmission Date: 20110219
  Serious: Yes (Hospitalization, Disabling)
  Sender: FDA-Public Use
  Company Number: None

PATIENT
  Age: 24 Year
  Sex: Female
  Weight: 52.1637 kg

DRUGS (2)
  1. YAZ [Suspect]
     Indication: CONTRACEPTION
     Dosage: 3MG TABLET ONCE PER DAY PO
     Route: 048
  2. YAZ [Suspect]
     Indication: HORMONE LEVEL ABNORMAL
     Dosage: 3MG TABLET ONCE PER DAY PO
     Route: 048

REACTIONS (3)
  - CHOLECYSTITIS [None]
  - CHOLELITHIASIS [None]
  - MALAISE [None]
